FAERS Safety Report 8952839 (Version 3)
Quarter: 2013Q3

REPORT INFORMATION
  Report Type: Report from Study
  Country: US (occurrence: US)
  Receive Date: 20121203
  Receipt Date: 20130726
  Transmission Date: 20140515
  Serious: Yes (Other)
  Sender: FDA-Public Use
  Company Number: PHEH2012US018869

PATIENT
  Age: 55 Year
  Sex: Female

DRUGS (5)
  1. GLEEVEC [Suspect]
     Indication: CHRONIC MYELOID LEUKAEMIA
     Dosage: 200 MG, DAILY
     Route: 048
     Dates: start: 20120914
  2. GLEEVEC [Suspect]
     Dosage: 400 MG, DAILY
     Route: 048
     Dates: start: 20120914, end: 20121028
  3. GLEEVEC [Suspect]
     Dosage: 1 DF, Q6H
     Route: 048
     Dates: start: 20120914, end: 20121028
  4. GLEEVEC [Suspect]
     Dosage: UNK UKN, UNK
     Route: 048
     Dates: start: 201304
  5. GLEEVEC [Suspect]
     Dosage: 100 MG, QID
     Route: 048

REACTIONS (18)
  - Throat tightness [Unknown]
  - Wrong technique in drug usage process [Unknown]
  - Drug intolerance [Unknown]
  - White blood cell disorder [Unknown]
  - Platelet count increased [Unknown]
  - Mean cell volume increased [Unknown]
  - Mean cell haemoglobin increased [Unknown]
  - Haemoglobin decreased [Unknown]
  - Haematocrit decreased [Unknown]
  - Fructose intolerance [Unknown]
  - Vomiting [Unknown]
  - Headache [Unknown]
  - Red blood cell count decreased [Unknown]
  - White blood cell count decreased [Recovered/Resolved]
  - Platelet count decreased [Unknown]
  - Diarrhoea [Unknown]
  - Weight decreased [Unknown]
  - Irritable bowel syndrome [Unknown]
